FAERS Safety Report 5824962-0 (Version None)
Quarter: 2008Q3

REPORT INFORMATION
  Report Type: 
  Country: None (occurrence: None)
  Receive Date: 20080728
  Receipt Date: 20080716
  Transmission Date: 20090109
  Serious: Yes (Hospitalization, Other)
  Sender: FDA-Public Use
  Company Number: JP-PFIZER INC-2008056194

PATIENT
  Sex: Female
  Weight: 46 kg

DRUGS (17)
  1. VFEND [Suspect]
     Indication: BRONCHOPULMONARY ASPERGILLOSIS
     Route: 048
     Dates: start: 20070127, end: 20070531
  2. VFEND [Suspect]
     Route: 048
     Dates: start: 20070601, end: 20070618
  3. EPOGIN [Suspect]
     Indication: ANAEMIA
     Dosage: DAILY DOSE:6000I.U.
     Route: 058
     Dates: start: 20070327, end: 20070626
  4. AMPHOTERICIN B [Concomitant]
  5. CORTICOSTEROIDS [Concomitant]
  6. IMMUNOSUPPRESSIVE AGENTS [Concomitant]
  7. PREDONINE [Concomitant]
     Dosage: DAILY DOSE:50MG
     Route: 048
  8. MAXIPIME [Concomitant]
     Route: 042
     Dates: start: 20070618, end: 20070625
  9. NEO-LOTAN [Concomitant]
     Route: 048
     Dates: start: 20061219
  10. ENALAPRIL MALEATE [Concomitant]
     Route: 048
     Dates: start: 20061223
  11. GASLON [Concomitant]
     Route: 048
     Dates: start: 20070129
  12. LASIX [Concomitant]
     Route: 048
     Dates: start: 20070422
  13. ALDACTONE [Concomitant]
     Route: 048
     Dates: start: 20070422
  14. TAKEPRON [Concomitant]
     Route: 048
     Dates: start: 20070428
  15. SELBEX [Concomitant]
     Route: 048
     Dates: start: 20070428
  16. SUCRALFATE [Concomitant]
     Route: 048
     Dates: start: 20070503
  17. FERROMIA [Concomitant]
     Route: 048
     Dates: start: 20070525

REACTIONS (3)
  - CARDIAC FAILURE [None]
  - CARDIOMYOPATHY [None]
  - PERICARDIAL EFFUSION [None]
